FAERS Safety Report 4415676-2 (Version None)
Quarter: 2004Q2

REPORT INFORMATION
  Report Type: 
  Country: None (occurrence: None)
  Receive Date: 20040618
  Receipt Date: 20040330
  Transmission Date: 20050107
  Serious: Yes (Other)
  Sender: FDA-Public Use
  Company Number: US-JNJFOC-20040201267

PATIENT
  Age: 25 Year
  Sex: Female
  Weight: 88.905 kg

DRUGS (4)
  1. ORTHO EVRA [Suspect]
     Indication: CONTRACEPTION
     Dosage: 1 DOSE(S), 3 IN 4 WEEK, TRANSDERMAL
     Route: 062
     Dates: end: 20040105
  2. BISOPROLOL (UNSPECIFIED) BISOPROLOL [Concomitant]
  3. LABETALOL (UNSPECIFIED) LABETALOL [Concomitant]
  4. PRENATAL VITAMINS (PRENATAL VITAMINS) [Concomitant]

REACTIONS (4)
  - DRUG EXPOSURE DURING PREGNANCY [None]
  - HYPERTENSION [None]
  - PELVIC PAIN [None]
  - UNINTENDED PREGNANCY [None]
